FAERS Safety Report 5052569-4 (Version None)
Quarter: 2006Q3

REPORT INFORMATION
  Report Type: 
  Country: None (occurrence: None)
  Receive Date: 20060717
  Receipt Date: 20060708
  Transmission Date: 20061208
  Serious: Yes (Other)
  Sender: FDA-Public Use
  Company Number: US-GLAXOSMITHKLINE-A0611734A

PATIENT
  Age: 52 Year
  Sex: Female

DRUGS (1)
  1. ECOTRIN [Suspect]
     Indication: DRUG USE FOR UNKNOWN INDICATION

REACTIONS (3)
  - COAGULOPATHY [None]
  - EXTRAVASATION BLOOD [None]
  - PIGMENTATION DISORDER [None]
